FAERS Safety Report 9504604 (Version 1)
Quarter: 2013Q3

REPORT INFORMATION
  Report Type: Report from Study
  Country: US (occurrence: US)
  Receive Date: 20130906
  Receipt Date: 20130906
  Transmission Date: 20140515
  Serious: Yes (Life-Threatening, Other)
  Sender: FDA-Public Use
  Company Number: US-TAKEDA-2013TUS000062

PATIENT
  Age: 78 Year
  Sex: Male
  Weight: 105 kg

DRUGS (10)
  1. BLINDED ALLOPURINOL [Suspect]
     Indication: HYPERURICAEMIA
     Dosage: UNK
     Route: 048
     Dates: start: 20110221
  2. BLINDED FEBUXOSTAT [Suspect]
     Indication: HYPERURICAEMIA
     Dosage: UNK
     Route: 048
     Dates: start: 20110221
  3. LEVOTHYROXINE [Concomitant]
     Indication: HYPOTHYROIDISM
     Dosage: 50 MCG, UNK
     Route: 048
     Dates: start: 1980
  4. NIASPAN [Concomitant]
     Indication: HYPERLIPIDAEMIA
     Dosage: 125 MG, BID
     Route: 048
     Dates: start: 2007
  5. COLCHICINE [Concomitant]
     Indication: GOUT
     Dosage: 0.6 MG, PRN
     Route: 048
     Dates: start: 2000
  6. PRAVASTATIN [Concomitant]
     Indication: HYPERLIPIDAEMIA
     Dosage: 80 MG, QD
     Route: 048
     Dates: start: 2004
  7. NITROGLYCERINE [Concomitant]
     Indication: ANGINA PECTORIS
     Dosage: 0.4 MG, PRN
     Route: 060
     Dates: start: 2001
  8. LANTUS [Concomitant]
     Indication: DIABETES MELLITUS
     Dosage: 15 IU, QD
     Route: 048
     Dates: start: 20111119
  9. OMEPRAZOLE [Concomitant]
     Indication: GASTROOESOPHAGEAL REFLUX DISEASE
     Dosage: 40 MG, BID
     Route: 048
     Dates: start: 20120113
  10. ALLOPURINOL [Concomitant]
     Indication: HYPERURICAEMIA
     Dosage: 100 MG, QD
     Route: 048
     Dates: start: 1998, end: 20110127

REACTIONS (1)
  - Primary mediastinal large B-cell lymphoma stage II [Unknown]
